FAERS Safety Report 7489209-0 (Version None)
Quarter: 2011Q2

REPORT INFORMATION
  Report Type: 
  Country: None (occurrence: None)
  Receive Date: 20110518
  Receipt Date: 20110504
  Transmission Date: 20111010
  Serious: Yes (Hospitalization, Other)
  Sender: FDA-Public Use
  Company Number: US-TYCO HEALTHCARE/MALLINCKRODT-T201100928

PATIENT
  Age: 55 Year
  Sex: Male

DRUGS (4)
  1. PAMELOR [Suspect]
     Dosage: UNK
     Dates: start: 20050118
  2. METHADOSE [Suspect]
     Indication: PAIN
     Dosage: 30 MG, QD
  3. METHADOSE [Suspect]
     Dosage: 40 MG, QD
     Dates: start: 20060101
  4. METHADOSE [Suspect]
     Dosage: 15 MG, QD
     Dates: start: 20040322

REACTIONS (3)
  - SEPTIC SHOCK [None]
  - ELECTROCARDIOGRAM QT PROLONGED [None]
  - RENAL FAILURE ACUTE [None]
